FAERS Safety Report 7828562-2 (Version None)
Quarter: 2011Q4

REPORT INFORMATION
  Report Type: 
  Country: None (occurrence: None)
  Receive Date: 20111020
  Receipt Date: 20111020
  Transmission Date: 20120403
  Serious: Yes (Hospitalization)
  Sender: FDA-Public Use
  Company Number: None

PATIENT
  Age: 62 Year
  Sex: Male
  Weight: 1067.7 kg

DRUGS (1)
  1. IPILIMUMAB [Suspect]
     Indication: METASTATIC MALIGNANT MELANOMA
     Dosage: 324MG
     Route: 041
     Dates: start: 20111018, end: 20111018

REACTIONS (3)
  - CHEST PAIN [None]
  - BACK PAIN [None]
  - INFUSION RELATED REACTION [None]
